FAERS Safety Report 7432400-X (Version None)
Quarter: 2011Q2

REPORT INFORMATION
  Report Type: 
  Country: None (occurrence: None)
  Receive Date: 20110422
  Receipt Date: 20110419
  Transmission Date: 20111010
  Serious: Yes (Hospitalization)
  Sender: FDA-Public Use
  Company Number: US-B.I. PHARMACEUTICALS,INC./RIDGEFIELD-2011-BP-02949BP

PATIENT
  Age: 87 Year
  Sex: Female

DRUGS (6)
  1. NORVASC [Concomitant]
  2. LIPITOR [Concomitant]
     Dosage: 40 MG
  3. MULTAQ [Concomitant]
     Dates: start: 20110207, end: 20110213
  4. FOLIC ACID [Concomitant]
     Dosage: 1 MG
  5. ATENOLOL [Concomitant]
     Dosage: 50 MG
     Route: 048
  6. PRADAXA [Suspect]
     Dosage: 300 MG
     Route: 048
     Dates: start: 20110207, end: 20110213

REACTIONS (4)
  - INTERNATIONAL NORMALISED RATIO INCREASED [None]
  - RENAL FAILURE ACUTE [None]
  - CARDIAC FAILURE CONGESTIVE [None]
  - ACTIVATED PARTIAL THROMBOPLASTIN TIME ABNORMAL [None]
